FAERS Safety Report 24421198 (Version 1)
Quarter: 2024Q4

REPORT INFORMATION
  Report Type: Spontaneous
  Country: US (occurrence: US)
  Receive Date: 20241010
  Receipt Date: 20241010
  Transmission Date: 20250115
  Serious: No
  Sender: LAURUS LABS LIMITED
  Company Number: US-LAURUS LABS LIMITED-2024LAU000004

PATIENT

DRUGS (2)
  1. METFORMIN [Suspect]
     Active Substance: METFORMIN HYDROCHLORIDE
     Indication: Product used for unknown indication
     Dosage: 500 MILLIGRAM, QD
     Route: 065
  2. METFORMIN [Suspect]
     Active Substance: METFORMIN HYDROCHLORIDE
     Dosage: 500 MILLIGRAM, QID
     Route: 065

REACTIONS (5)
  - Blood glucose increased [Recovering/Resolving]
  - Visual impairment [Recovering/Resolving]
  - Malaise [Unknown]
  - Vomiting [Unknown]
  - Drug ineffective [Unknown]
